FAERS Safety Report 26086237 (Version 1)
Quarter: 2025Q4

REPORT INFORMATION
  Report Type: Spontaneous
  Country: US (occurrence: US)
  Receive Date: 20251125
  Receipt Date: 20251125
  Transmission Date: 20260118
  Serious: No
  Sender: ELI LILLY AND COMPANY
  Company Number: US-ELI_LILLY_AND_COMPANY-US202511027078

PATIENT
  Age: 40 Year
  Sex: Female

DRUGS (2)
  1. ZEPBOUND [Suspect]
     Active Substance: TIRZEPATIDE
     Indication: Weight control
     Dosage: 12.5 MG, UNKNOWN
     Route: 065
     Dates: start: 20251114
  2. ZEPBOUND [Suspect]
     Active Substance: TIRZEPATIDE
     Dosage: 10 MG, UNKNOWN
     Route: 065

REACTIONS (4)
  - Diarrhoea [Unknown]
  - Asthenia [Unknown]
  - Fatigue [Unknown]
  - Dizziness [Unknown]
